FAERS Safety Report 8036455-3 (Version None)
Quarter: 2012Q1

REPORT INFORMATION
  Report Type: 
  Country: None (occurrence: None)
  Receive Date: 20120111
  Receipt Date: 20120106
  Transmission Date: 20120608
  Serious: Yes (Other)
  Sender: FDA-Public Use
  Company Number: US-PFIZER INC-2012005793

PATIENT
  Age: 65 Year
  Sex: Female

DRUGS (5)
  1. METHOHEXITAL [Concomitant]
     Indication: ANAESTHESIA
     Dosage: 70 MG, UNK
  2. PHENELZINE SULFATE [Suspect]
     Dosage: 15 MG, 3X/DAY
  3. AMLODIPINE BESYLATE AND BENAZEPRIL HCL [Concomitant]
     Dosage: 5MG TO 20MG, DAILY
  4. SUCCINYLCHOLINE CHLORIDE [Concomitant]
     Indication: ANAESTHESIA
     Dosage: 60 MG, UNK
  5. OMEPRAZOLE MAGNESIUM [Concomitant]
     Dosage: 20 MG, 1X/DAY

REACTIONS (2)
  - CARDIAC ARREST [None]
  - BRADYCARDIA [None]
